FAERS Safety Report 18637041 (Version 1)
Quarter: 2020Q4

REPORT INFORMATION
  Report Type: Report from Study
  Country: US (occurrence: US)
  Receive Date: 20201218
  Receipt Date: 20201218
  Transmission Date: 20210114
  Serious: No
  Sender: FDA-Public Use
  Company Number: US-REGENERON PHARMACEUTICALS, INC.-2020-45737

PATIENT

DRUGS (4)
  1. EYLEA [Suspect]
     Active Substance: AFLIBERCEPT
     Indication: OSTEOARTHRITIS
     Dosage: 2 MG/0.05 ML SDV, EVERY 4 WEEKS, BOTH EYES
     Route: 031
  2. EYLEA [Suspect]
     Active Substance: AFLIBERCEPT
     Indication: OSTEOARTHRITIS
  3. EYLEA [Suspect]
     Active Substance: AFLIBERCEPT
     Indication: CHONDROMALACIA
  4. MONOVISC [Concomitant]
     Active Substance: DEVICE
     Indication: PRODUCT USED FOR UNKNOWN INDICATION

REACTIONS (2)
  - Off label use [Unknown]
  - Alopecia [Unknown]
